FAERS Safety Report 6112856-5 (Version None)
Quarter: 2009Q1

REPORT INFORMATION
  Report Type: 
  Country: None (occurrence: None)
  Receive Date: 20090310
  Receipt Date: 20090226
  Transmission Date: 20090719
  Serious: No
  Sender: FDA-Public Use
  Company Number: B0558047A

PATIENT
  Age: 44 Year
  Sex: Female

DRUGS (3)
  1. ONDANSETRON HYDROCHLORIDE (FORMULATION UNKNOWN) (GENERIC) [Suspect]
     Indication: ELECTIVE SURGERY
  2. VECURONIUM BROMIDE [Concomitant]
  3. PROPOFOL [Concomitant]

REACTIONS (2)
  - ANAPHYLACTIC REACTION [None]
  - TRYPTASE INCREASED [None]
